FAERS Safety Report 5227999-8 (Version None)
Quarter: 2007Q1

REPORT INFORMATION
  Report Type: 
  Country: None (occurrence: None)
  Receive Date: 20061205
  Receipt Date: 20061009
  Transmission Date: 20070707
  Serious: No
  Sender: FDA-Public Use
  Company Number: PHEH2006US12774

PATIENT
  Sex: Female

DRUGS (1)
  1. EXJADE [Suspect]
     Dosage: 20 MG/KG, QD, ORAL
     Route: 048
     Dates: start: 20060901

REACTIONS (2)
  - CHILLS [None]
  - VISION BLURRED [None]
